FAERS Safety Report 9234255 (Version 1)
Quarter: 2013Q2

REPORT INFORMATION
  Report Type: Spontaneous
  Country: FR (occurrence: FR)
  Receive Date: 20130416
  Receipt Date: 20130418
  Transmission Date: 20140414
  Serious: Yes (Other)
  Sender: FDA-Public Use
  Company Number: PHHY2013FR036767

PATIENT
  Sex: Female

DRUGS (2)
  1. CEFTRIAXONE SANDOZ [Suspect]
     Indication: INFECTION
     Dosage: 1 DF (1G/3.5 ML) DAILY
     Route: 030
     Dates: start: 20130406
  2. CEFTRIAXONE SANDOZ [Suspect]
     Dosage: 1 DF (1G/3.5 ML) DAILY
     Route: 030
     Dates: start: 20130413

REACTIONS (8)
  - Abscess rupture [Unknown]
  - Epistaxis [Not Recovered/Not Resolved]
  - Haematoma [Unknown]
  - Swelling [Unknown]
  - Thermal burn [Unknown]
  - Blister [Unknown]
  - Acne [Unknown]
  - Headache [Not Recovered/Not Resolved]
